FAERS Safety Report 14114291 (Version 1)
Quarter: 2017Q4

REPORT INFORMATION
  Report Type: Spontaneous
  Country: DE (occurrence: DE)
  Receive Date: 20171023
  Receipt Date: 20171023
  Transmission Date: 20180321
  Serious: Yes (Other)
  Sender: FDA-Public Use
  Company Number: DE-009507513-1710DEU008235

PATIENT
  Age: 45 Year
  Sex: Male

DRUGS (1)
  1. DIPROGENTA [Suspect]
     Active Substance: BETAMETHASONE DIPROPIONATE\GENTAMICIN SULFATE
     Dosage: UNK

REACTIONS (1)
  - Paranasal sinus injury [Unknown]
